FAERS Safety Report 8309400-0 (Version None)
Quarter: 2012Q2

REPORT INFORMATION
  Report Type: 
  Country: None (occurrence: None)
  Receive Date: 20120420
  Receipt Date: 20120406
  Transmission Date: 20120825
  Serious: Yes (Other)
  Sender: FDA-Public Use
  Company Number: AUR-APL-2012-01787

PATIENT
  Age: 65 Year
  Sex: Male

DRUGS (6)
  1. AMARYL [Suspect]
     Indication: PRODUCT USED FOR UNKNOWN INDICATION
  2. INSULIN GLARGINE (INSULIN GLARGINE) [Suspect]
     Indication: TYPE 2 DIABETES MELLITUS
     Dosage: 10 UNITS (10 UNITS AT NIGHT)
     Dates: start: 20120201, end: 20120301
  3. METFORMIN HCL [Suspect]
     Indication: PRODUCT USED FOR UNKNOWN INDICATION
  4. JANUVIA [Suspect]
     Indication: PRODUCT USED FOR UNKNOWN INDICATION
  5. ALTACE [Suspect]
     Indication: PRODUCT USED FOR UNKNOWN INDICATION
  6. GARLIC (ALLIUM SATIVUM) [Suspect]
     Indication: PRODUCT USED FOR UNKNOWN INDICATION

REACTIONS (6)
  - PRURITUS [None]
  - SWELLING [None]
  - WEIGHT DECREASED [None]
  - OEDEMA PERIPHERAL [None]
  - LIP SWELLING [None]
  - RASH [None]
